FAERS Safety Report 14624486 (Version 1)
Quarter: 2018Q1

REPORT INFORMATION
  Report Type: Spontaneous
  Country: US (occurrence: US)
  Receive Date: 20180312
  Receipt Date: 20180312
  Transmission Date: 20180509
  Serious: No
  Sender: FDA-Public Use
  Company Number: US-ALKERMES INC.-ALK-2018-001339

PATIENT
  Age: 22 Year
  Sex: Female
  Weight: 54.42 kg

DRUGS (5)
  1. LIBRIUM [Concomitant]
     Active Substance: CHLORDIAZEPOXIDE HYDROCHLORIDE
     Indication: DETOXIFICATION
  2. BACLOFEN. [Concomitant]
     Active Substance: BACLOFEN
     Indication: DETOXIFICATION
  3. CLONIDINE. [Concomitant]
     Active Substance: CLONIDINE
     Indication: DETOXIFICATION
  4. ONDANSETRON [Concomitant]
     Active Substance: ONDANSETRON
     Indication: DETOXIFICATION
  5. VIVITROL [Suspect]
     Active Substance: NALTREXONE
     Indication: DRUG DEPENDENCE
     Dosage: 380 MG, QMO
     Route: 030
     Dates: start: 20180226

REACTIONS (4)
  - Palpitations [Not Recovered/Not Resolved]
  - Cardiac disorder [Not Recovered/Not Resolved]
  - Hypoaesthesia [Not Recovered/Not Resolved]
  - Pain in extremity [Not Recovered/Not Resolved]

NARRATIVE: CASE EVENT DATE: 201802
